APPROVED DRUG PRODUCT: TOFACITINIB CITRATE
Active Ingredient: TOFACITINIB CITRATE
Strength: EQ 11MG BASE
Dosage Form/Route: TABLET, EXTENDED RELEASE;ORAL
Application: A219442 | Product #001 | TE Code: AB
Applicant: BIOCON PHARMA LTD
Approved: Nov 17, 2025 | RLD: No | RS: No | Type: RX